FAERS Safety Report 23298127 (Version 2)
Quarter: 2024Q1

REPORT INFORMATION
  Report Type: Spontaneous
  Country: CN (occurrence: CN)
  Receive Date: 20231214
  Receipt Date: 20240102
  Transmission Date: 20240410
  Serious: Yes (Hospitalization, Other)
  Sender: FDA-Public Use
  Company Number: CN-JNJFOC-20231209700

PATIENT
  Age: 29 Year

DRUGS (5)
  1. TOPAMAX [Suspect]
     Active Substance: TOPIRAMATE
     Indication: Epilepsy
     Dosage: TOPAMAX, 25MG*60 TABLETS/BOTTLE
     Route: 048
  2. TOPAMAX [Suspect]
     Active Substance: TOPIRAMATE
     Dosage: 2 TIMES A DAY, 2 TABLETS/MORNING AND 3 TABLETS/NIGHT
     Route: 048
  3. TOPAMAX [Suspect]
     Active Substance: TOPIRAMATE
     Dosage: : 3 TABLETS PER DAY/ MORNING, 3 TABLETS/NIGHT.
     Route: 048
  4. PHENOBARBITAL [Suspect]
     Active Substance: PHENOBARBITAL
     Indication: Epilepsy
     Route: 065
  5. OXCARBAZEPINE [Interacting]
     Active Substance: OXCARBAZEPINE
     Indication: Epilepsy
     Route: 065

REACTIONS (4)
  - Drug level decreased [Unknown]
  - Gingival disorder [Unknown]
  - Tooth loss [Unknown]
  - Drug interaction [Unknown]
